FAERS Safety Report 25656582 (Version 1)
Quarter: 2025Q3

REPORT INFORMATION
  Report Type: Spontaneous
  Country: US (occurrence: US)
  Receive Date: 20250807
  Receipt Date: 20250807
  Transmission Date: 20251021
  Serious: Yes (Hospitalization)
  Sender: PURDUE
  Company Number: US-PURDUE PHARMA-USA-2025-0319519

PATIENT
  Age: 28 Year
  Sex: Male
  Weight: 61.1 kg

DRUGS (6)
  1. MORPHINE SULFATE [Suspect]
     Active Substance: MORPHINE SULFATE
     Indication: Pain
     Route: 065
  2. DILAUDID [Suspect]
     Active Substance: HYDROMORPHONE HYDROCHLORIDE
     Indication: Pain
     Route: 048
     Dates: start: 20230424
  3. DILAUDID [Suspect]
     Active Substance: HYDROMORPHONE HYDROCHLORIDE
     Route: 048
  4. NORCO [Suspect]
     Active Substance: ACETAMINOPHEN\HYDROCODONE BITARTRATE
     Indication: Pain
     Route: 065
  5. ZANAFLEX [Suspect]
     Active Substance: TIZANIDINE HYDROCHLORIDE
     Indication: Pain
     Route: 048
     Dates: start: 20230417
  6. ZANAFLEX [Suspect]
     Active Substance: TIZANIDINE HYDROCHLORIDE
     Indication: Muscle spasms

REACTIONS (3)
  - Bone pain [Recovering/Resolving]
  - Abdominal pain [Unknown]
  - Inadequate analgesia [Unknown]

NARRATIVE: CASE EVENT DATE: 20230426
